FAERS Safety Report 4325317-0 (Version None)
Quarter: 2004Q1

REPORT INFORMATION
  Report Type: 
  Country: None (occurrence: None)
  Receive Date: 20040323
  Receipt Date: 20040323
  Transmission Date: 20041129
  Serious: Yes (Hospitalization)
  Sender: FDA-Public Use
  Company Number: 04P-062-0253184-00

PATIENT
  Age: 60 Year
  Sex: Female
  Weight: 64 kg

DRUGS (16)
  1. HUMIRA [Suspect]
     Indication: RHEUMATOID ARTHRITIS
     Dosage: 40 MG, 1 IN 2 WK, SUBCUTANEOUS
     Route: 058
     Dates: start: 20030918, end: 20040118
  2. CHLOROQUINE PHOSPHATE [Concomitant]
  3. SULFASALAZINE [Concomitant]
  4. GOLD [Concomitant]
  5. METHOTREXATE SODIUM [Concomitant]
  6. AZATHIOPRINE [Concomitant]
  7. LEFLUNOMIDE [Concomitant]
  8. ETANERCEPT [Concomitant]
  9. PENICILLAMINE [Concomitant]
  10. ROFECOXIB [Concomitant]
  11. PREDNISONE [Concomitant]
  12. RISEDRONATE SODIUM [Concomitant]
  13. KINERET [Concomitant]
  14. RANITIDINE HYDROCHLORIDE [Concomitant]
  15. AMPICILLIN [Concomitant]
  16. CALVULIN [Concomitant]

REACTIONS (6)
  - ADENOIDAL DISORDER [None]
  - HYPERTENSION [None]
  - LARYNGOTRACHEITIS [None]
  - NASOPHARYNGITIS [None]
  - PNEUMONIA [None]
  - VOCAL CORD POLYP [None]
